FAERS Safety Report 18500743 (Version 2)
Quarter: 2021Q1

REPORT INFORMATION
  Report Type: Other
  Country: DE (occurrence: DE)
  Receive Date: 20201113
  Receipt Date: 20210220
  Transmission Date: 20210419
  Serious: Yes (Hospitalization)
  Sender: FDA-Public Use
  Company Number: DE-ROCHE-2341957

PATIENT
  Age: 82 Year
  Sex: Male

DRUGS (16)
  1. ROACTEMRA [Suspect]
     Active Substance: TOCILIZUMAB
     Indication: RHEUMATOID ARTHRITIS
     Route: 058
     Dates: start: 20190320, end: 20190724
  2. CORTISON [Concomitant]
     Active Substance: CORTISONE ACETATE
  3. ALDACTONE [Concomitant]
     Active Substance: SPIRONOLACTONE
  4. ATORVASTATIN [Concomitant]
     Active Substance: ATORVASTATIN
  5. ROACTEMRA [Suspect]
     Active Substance: TOCILIZUMAB
     Dosage: CONTINUED
     Route: 058
  6. CANDESARTAN. [Concomitant]
     Active Substance: CANDESARTAN
  7. PANTOPRAZOLE [Concomitant]
     Active Substance: PANTOPRAZOLE
  8. ROACTEMRA [Suspect]
     Active Substance: TOCILIZUMAB
     Indication: GIANT CELL ARTERITIS
     Route: 058
     Dates: start: 20190828
  9. METOPROLOL. [Concomitant]
     Active Substance: METOPROLOL
  10. ROACTEMRA [Suspect]
     Active Substance: TOCILIZUMAB
     Route: 058
     Dates: start: 20190320, end: 20200928
  11. XARELTO [Concomitant]
     Active Substance: RIVAROXABAN
  12. CARMEN (GERMANY) [Concomitant]
     Active Substance: LERCANIDIPINE HYDROCHLORIDE
  13. MOXONIDIN [Concomitant]
     Active Substance: MOXONIDINE
  14. ASPIRIN. [Concomitant]
     Active Substance: ASPIRIN
  15. ALLOPURINOL. [Concomitant]
     Active Substance: ALLOPURINOL
  16. TORASEMIDE [Concomitant]
     Active Substance: TORSEMIDE
     Dates: start: 201906

REACTIONS (3)
  - Oedema peripheral [Recovered/Resolved]
  - Bladder neoplasm [Recovered/Resolved]
  - Erysipelas [Recovered/Resolved]

NARRATIVE: CASE EVENT DATE: 20190528
